FAERS Safety Report 7141171-6 (Version None)
Quarter: 2010Q4

REPORT INFORMATION
  Report Type: 
  Country: None (occurrence: None)
  Receive Date: 20101122
  Receipt Date: 20101105
  Transmission Date: 20110411
  Serious: Yes (Life-Threatening, Hospitalization)
  Sender: FDA-Public Use
  Company Number: AUR-APL-2010-02785

PATIENT
  Age: 48 Year
  Sex: Female

DRUGS (4)
  1. CITALOPRAM [Suspect]
     Dosage: 20MG - BID - ORAL
     Route: 048
  2. DIAZEPAM [Suspect]
     Dosage: 2MG - TID - ORAL
     Route: 048
  3. OLANZAPINE [Suspect]
     Dosage: 5MG - ^11 IN ONE DAY^ - ORAL
     Route: 048
  4. ZOPICLONE [Suspect]
     Dosage: 3.75MG - ORAL
     Route: 048

REACTIONS (2)
  - RESPIRATORY ARREST [None]
  - SYNCOPE [None]
